FAERS Safety Report 17350849 (Version 1)
Quarter: 2020Q1

REPORT INFORMATION
  Report Type: Spontaneous
  Country: US (occurrence: US)
  Receive Date: 20200130
  Receipt Date: 20200130
  Transmission Date: 20200409
  Serious: Yes (Death, Life-Threatening, Other)
  Sender: FDA-Public Use
  Company Number: US-AMGEN-USASP2020013257

PATIENT

DRUGS (5)
  1. TAXOTERE [Concomitant]
     Active Substance: DOCETAXEL
     Indication: NON-SMALL CELL LUNG CANCER
     Dosage: UNK (INITIALLY 60 MILLIGRAM/SQ. METER THEN DOSE REDUCED TO 45 MILLIGRAM/SQ. METER)
  2. CIPROFLOXACIN. [Concomitant]
     Active Substance: CIPROFLOXACIN
     Indication: PROPHYLAXIS
     Dosage: 500 MILLIGRAM, BID (FOR SEVEN DAYS STARING 8 HOURS AFTER CHEMOTHERAPY)
  3. VINORELBINE [Concomitant]
     Active Substance: VINORELBINE TARTRATE
     Indication: NON-SMALL CELL LUNG CANCER
     Dosage: 45 MILLIGRAM/SQ. METER, Q2WK
     Route: 042
  4. DEXAMETHASONE. [Concomitant]
     Active Substance: DEXAMETHASONE
     Dosage: UNK (4 TO 8 MILLIGRAM, THE EVENING BEFORE, THE MORNING OF AND THE EVENING AFTER EACH CHEMOTHERAPY)
     Route: 048
  5. NEULASTA [Suspect]
     Active Substance: PEGFILGRASTIM
     Indication: PROPHYLAXIS
     Dosage: 6 MILLIGRAM
     Route: 058

REACTIONS (15)
  - Nausea [Unknown]
  - Febrile neutropenia [Unknown]
  - Drug ineffective [Unknown]
  - Decreased appetite [Unknown]
  - Dyspnoea [Unknown]
  - Cough [Unknown]
  - Pneumonitis [Unknown]
  - Neutropenia [Unknown]
  - Anaemia [Unknown]
  - Hyperglycaemia [Unknown]
  - Non-small cell lung cancer recurrent [Unknown]
  - Death [Fatal]
  - Embolism venous [Unknown]
  - Fatigue [Unknown]
  - Hypersensitivity [Unknown]
